FAERS Safety Report 24441771 (Version 2)
Quarter: 2024Q4

REPORT INFORMATION
  Report Type: Report from Study
  Country: US (occurrence: US)
  Receive Date: 20241016
  Receipt Date: 20241017
  Transmission Date: 20250114
  Serious: No
  Sender: ROCHE
  Company Number: US-ROCHE-3500604

PATIENT
  Age: 4 Year
  Sex: Male
  Weight: 15.6 kg

DRUGS (2)
  1. HEMLIBRA [Suspect]
     Active Substance: EMICIZUMAB-KXWH
     Indication: Factor VIII deficiency
     Dosage: STRENGTH: 30MG/ML
     Route: 058
  2. HEMLIBRA [Suspect]
     Active Substance: EMICIZUMAB-KXWH
     Dosage: 0.3 ML (45 MG)
     Route: 058

REACTIONS (2)
  - Product prescribing error [Unknown]
  - No adverse event [Unknown]
